FAERS Safety Report 16745413 (Version 1)
Quarter: 2019Q3

REPORT INFORMATION
  Report Type: Spontaneous
  Country: US (occurrence: US)
  Receive Date: 20190827
  Receipt Date: 20190827
  Transmission Date: 20191005
  Serious: No
  Sender: FDA-Public Use
  Company Number: US-PFIZER INC-2019220460

PATIENT
  Age: 61 Year
  Sex: Female
  Weight: 62.13 kg

DRUGS (2)
  1. LYRICA [Suspect]
     Active Substance: PREGABALIN
     Dosage: 75 MG, 3X/DAY
     Route: 048
     Dates: start: 20190727
  2. LYRICA [Suspect]
     Active Substance: PREGABALIN
     Indication: NECK PAIN
     Dosage: 75 MG, 4X/DAY
     Route: 048

REACTIONS (13)
  - Back pain [Recovering/Resolving]
  - Spinal osteoarthritis [Recovering/Resolving]
  - Product use in unapproved indication [Unknown]
  - Back disorder [Unknown]
  - Musculoskeletal stiffness [Unknown]
  - Off label use [Unknown]
  - Crying [Unknown]
  - Restless legs syndrome [Recovering/Resolving]
  - Depression [Recovering/Resolving]
  - Gait disturbance [Unknown]
  - Anxiety [Unknown]
  - Pain [Unknown]
  - Arthropathy [Unknown]
